FAERS Safety Report 21202751 (Version 3)
Quarter: 2022Q3

REPORT INFORMATION
  Report Type: Report from Study
  Country: GP (occurrence: GP)
  Receive Date: 20220811
  Receipt Date: 20220906
  Transmission Date: 20221026
  Serious: Yes (Other)
  Sender: FDA-Public Use
  Company Number: GP-GILEAD-2022-0592932

PATIENT
  Sex: Female
  Weight: 72 kg

DRUGS (2)
  1. SACITUZUMAB GOVITECAN [Suspect]
     Active Substance: SACITUZUMAB GOVITECAN
     Indication: Triple negative breast cancer
     Dosage: 10 MG/KG ON C1D1 AND C1D8
     Route: 065
     Dates: start: 20220401, end: 20220408
  2. SACITUZUMAB GOVITECAN [Suspect]
     Active Substance: SACITUZUMAB GOVITECAN
     Dosage: 10 MG/KG ON C2D1 AND C2D8
     Route: 065
     Dates: start: 20220503, end: 20220510

REACTIONS (1)
  - Neutropenia [Unknown]
